FAERS Safety Report 4839030-4 (Version None)
Quarter: 2005Q4

REPORT INFORMATION
  Report Type: 
  Country: None (occurrence: None)
  Receive Date: 20051024
  Receipt Date: 20050922
  Transmission Date: 20060501
  Serious: Yes (Life-Threatening)
  Sender: FDA-Public Use
  Company Number: 214826

PATIENT
  Age: 53 Year
  Sex: Female
  Weight: 73.5 kg

DRUGS (8)
  1. XOLAIR [Suspect]
     Indication: ASTHMA
     Dosage: 150 MG,Q4W,SUBCUTANEOUS
     Route: 058
     Dates: start: 20031105, end: 20050510
  2. HORMONE REPLACEMENT THERAPY (HORMONES NOS) [Concomitant]
  3. NASACORT AQ (TRIAMCINOLONE ACETONIDE) [Concomitant]
  4. ADVAIR DISKUS 100/50 [Concomitant]
  5. EFFEXOR [Concomitant]
  6. FLEXERIL [Concomitant]
  7. FOSAMAX [Concomitant]
  8. VENTOLIN (ALBUTEROL, ALBUTEROL SULFATE) [Concomitant]

REACTIONS (1)
  - LUNG ADENOCARCINOMA [None]
